FAERS Safety Report 7648735-1 (Version None)
Quarter: 2011Q3

REPORT INFORMATION
  Report Type: 
  Country: None (occurrence: None)
  Receive Date: 20110801
  Receipt Date: 20110725
  Transmission Date: 20111222
  Serious: Yes (Other)
  Sender: FDA-Public Use
  Company Number: PHHY2011DE67803

PATIENT
  Sex: Female
  Weight: 69 kg

DRUGS (3)
  1. FORTEO [Concomitant]
     Dosage: UNK UKN, UNK
  2. ZOLEDRONOC ACID [Suspect]
     Indication: OSTEOPOROSIS
     Dosage: 5 MG, UNK
     Route: 042
     Dates: start: 20091215, end: 20091215
  3. DEKRISTOL [Concomitant]
     Indication: OSTEOPOROSIS
     Dosage: UNK UKN, UNK

REACTIONS (2)
  - VERTEBRAL WEDGING [None]
  - THORACIC VERTEBRAL FRACTURE [None]
